FAERS Safety Report 9492087 (Version 2)
Quarter: 2013Q3

REPORT INFORMATION
  Report Type: Spontaneous
  Country: US (occurrence: US)
  Receive Date: 20130830
  Receipt Date: 20130913
  Transmission Date: 20140515
  Serious: Yes (Death)
  Sender: FDA-Public Use
  Company Number: US-COVIDIEN/TYCO HEALTHCARE/MALLINCKRODT-T201304203

PATIENT
  Sex: 0
  Weight: 118.37 kg

DRUGS (3)
  1. FENTANYL CITRATE [Suspect]
     Indication: PRODUCT USED FOR UNKNOWN INDICATION
     Dosage: UNK
  2. DILAUDID [Concomitant]
     Dosage: (2) 4 MG, Q6 HRS
  3. STADOL [Concomitant]
     Route: 045

REACTIONS (2)
  - Coronary artery disease [Fatal]
  - Type 2 diabetes mellitus [Fatal]
